FAERS Safety Report 5002594-4 (Version None)
Quarter: 2006Q2

REPORT INFORMATION
  Report Type: 
  Country: None (occurrence: None)
  Receive Date: 20060515
  Receipt Date: 20060214
  Transmission Date: 20061013
  Serious: Yes (Hospitalization)
  Sender: FDA-Public Use
  Company Number: US-MERCK-0602USA04290

PATIENT
  Age: 52 Year
  Sex: Male
  Weight: 97 kg

DRUGS (14)
  1. VIOXX [Suspect]
     Indication: TENDONITIS
     Route: 048
     Dates: start: 19990930, end: 20020926
  2. VIOXX [Suspect]
     Route: 048
     Dates: start: 19990930, end: 20020926
  3. CELEBREX [Concomitant]
     Indication: PAIN
     Route: 065
     Dates: start: 20020901, end: 20021101
  4. CELEBREX [Concomitant]
     Route: 065
     Dates: start: 19990405, end: 19990601
  5. HYDROCODONE BITARTRATE + ACETAMINOPHEN [Concomitant]
     Indication: PAIN
     Route: 065
     Dates: start: 19991004
  6. NEURONTIN [Concomitant]
     Indication: PAIN
     Route: 065
     Dates: start: 20040324, end: 20041101
  7. TENORMIN [Concomitant]
     Indication: CARDIAC DISORDER
     Route: 065
     Dates: start: 19990511
  8. PLAVIX [Concomitant]
     Indication: HYPERVISCOSITY SYNDROME
     Route: 065
     Dates: start: 20010721, end: 20010801
  9. BEXTRA [Concomitant]
     Indication: PAIN
     Route: 065
     Dates: start: 20020927, end: 20021101
  10. LIPITOR [Concomitant]
     Indication: BLOOD CHOLESTEROL INCREASED
     Route: 065
     Dates: start: 19980113, end: 20010718
  11. TOLECTIN [Concomitant]
     Indication: PAIN
     Route: 065
     Dates: start: 19980320, end: 19980420
  12. ZOCOR [Concomitant]
     Indication: BLOOD CHOLESTEROL INCREASED
     Route: 065
     Dates: start: 20010721, end: 20031215
  13. CRESTOR [Concomitant]
     Indication: BLOOD TRIGLYCERIDES INCREASED
     Route: 065
     Dates: start: 20040409, end: 20040915
  14. GEMFIBROZIL [Concomitant]
     Indication: BLOOD TRIGLYCERIDES INCREASED
     Route: 065
     Dates: start: 20040916

REACTIONS (8)
  - CORONARY ARTERY DISEASE [None]
  - CORONARY ARTERY STENOSIS [None]
  - ELECTROCARDIOGRAM ST SEGMENT ELEVATION [None]
  - HYPOKINESIA [None]
  - INJURY [None]
  - MYOCARDIAL INFARCTION [None]
  - NAUSEA [None]
  - VOMITING [None]
